FAERS Safety Report 5827390-7 (Version None)
Quarter: 2008Q3

REPORT INFORMATION
  Report Type: 
  Country: None (occurrence: None)
  Receive Date: 20080730
  Receipt Date: 20080520
  Transmission Date: 20090109
  Serious: No
  Sender: FDA-Public Use
  Company Number: US-BAUSCH-2008BL002238

PATIENT
  Age: 75 Year
  Sex: Female

DRUGS (8)
  1. PREDNISOLONE SODIUM PHOSPHATE [Suspect]
     Indication: POSTOPERATIVE CARE
     Route: 047
     Dates: start: 20080513, end: 20080628
  2. PREDNISOLONE SODIUM PHOSPHATE [Suspect]
     Route: 047
     Dates: start: 20080513, end: 20080628
  3. INDERAL [Concomitant]
  4. ZOCOR [Concomitant]
  5. OSCAL [Concomitant]
  6. PROZAC [Concomitant]
  7. PREVACID [Concomitant]
  8. DARVOCET [Concomitant]

REACTIONS (1)
  - PUNCTATE KERATITIS [None]
